FAERS Safety Report 6853330-8 (Version None)
Quarter: 2010Q3

REPORT INFORMATION
  Report Type: 
  Country: None (occurrence: None)
  Receive Date: 20100717
  Receipt Date: 20071205
  Transmission Date: 20110219
  Serious: No
  Sender: FDA-Public Use
  Company Number: US-PFIZER INC-2007104704

PATIENT
  Sex: Female
  Weight: 95.5 kg

DRUGS (11)
  1. CHANTIX [Suspect]
     Indication: SMOKING CESSATION THERAPY
     Route: 048
     Dates: start: 20071001, end: 20071001
  2. ANTI-ASTHMATICS [Concomitant]
  3. ANXIOLYTICS [Concomitant]
  4. ADVAIR DISKUS 100/50 [Concomitant]
  5. MONTELUKAST SODIUM [Concomitant]
  6. FLONASE [Concomitant]
  7. ALL OTHER THERAPEUTIC PRODUCTS [Concomitant]
  8. PREVACID [Concomitant]
  9. XANAX [Concomitant]
  10. ALBUTEROL [Concomitant]
     Route: 055
  11. ALBUTEROL [Concomitant]

REACTIONS (2)
  - ASTHMA [None]
  - DYSPNOEA [None]
